FAERS Safety Report 14600487 (Version 2)
Quarter: 2018Q1

REPORT INFORMATION
  Report Type: Report from Study
  Country: DE (occurrence: DE)
  Receive Date: 20180305
  Receipt Date: 20180306
  Transmission Date: 20180509
  Serious: Yes (Death, Hospitalization)
  Sender: FDA-Public Use
  Company Number: DE-B.I. PHARMACEUTICALS,INC./RIDGEFIELD-2018-BI-011933

PATIENT
  Age: 63 Year
  Sex: Female
  Weight: 60 kg

DRUGS (2)
  1. VARGATEF [Suspect]
     Active Substance: NINTEDANIB
     Indication: NON-SMALL CELL LUNG CANCER
     Route: 048
     Dates: start: 20170404, end: 20170620
  2. DOXETACEL [Suspect]
     Active Substance: DOCETAXEL
     Indication: NON-SMALL CELL LUNG CANCER
     Dosage: END DATE - FEB-2017 75MG/M2 BODY SURFACE AREA
     Route: 042
     Dates: start: 20170531, end: 20170531

REACTIONS (9)
  - Malignant neoplasm progression [Fatal]
  - Decreased appetite [Unknown]
  - Diarrhoea [Unknown]
  - Lumbar vertebral fracture [Unknown]
  - Nausea [Unknown]
  - General physical health deterioration [Unknown]
  - Hypokalaemia [Unknown]
  - Back pain [Unknown]
  - Metastases to bone [Unknown]

NARRATIVE: CASE EVENT DATE: 20170618
